FAERS Safety Report 4556182-4 (Version None)
Quarter: 2005Q1

REPORT INFORMATION
  Report Type: 
  Country: None (occurrence: None)
  Receive Date: 20050103
  Receipt Date: 20041117
  Transmission Date: 20050727
  Serious: No
  Sender: FDA-Public Use
  Company Number: 2004UW18839

PATIENT
  Age: 74 Year
  Sex: Female
  Weight: 58.514 kg

DRUGS (4)
  1. CRESTOR [Suspect]
     Indication: HYPERLIPIDAEMIA
     Dosage: 20 MG PO
     Route: 048
  2. DYNACIRC [Concomitant]
  3. FOSINOPRIL [Concomitant]
  4. OMEPRAZOLE [Concomitant]

REACTIONS (1)
  - MUSCLE SPASMS [None]
